FAERS Safety Report 8879506 (Version 3)
Quarter: 2013Q1

REPORT INFORMATION
  Report Type: Spontaneous
  Country: IT (occurrence: IT)
  Receive Date: 20121101
  Receipt Date: 20130111
  Transmission Date: 20140127
  Serious: Yes (Hospitalization)
  Sender: FDA-Public Use
  Company Number: IT-ABBOTT-12P-083-0998266-00

PATIENT
  Age: 50 Year
  Sex: Female

DRUGS (8)
  1. KLACID [Suspect]
     Indication: GASTROOESOPHAGEAL REFLUX DISEASE
     Dosage: TOTAL
     Route: 048
     Dates: start: 20120911, end: 20120911
  2. KLACID [Suspect]
     Indication: HELICOBACTER INFECTION
  3. VELAMOX [Suspect]
     Indication: GASTROOESOPHAGEAL REFLUX DISEASE
     Dosage: TOTAL
     Route: 048
     Dates: start: 20120911, end: 20120911
  4. VELAMOX [Suspect]
     Indication: HELICOBACTER INFECTION
  5. MEPRAL [Suspect]
     Indication: GASTROOESOPHAGEAL REFLUX DISEASE
     Dosage: TOTAL
     Route: 048
     Dates: start: 20120911, end: 20120911
  6. MEPRAL [Suspect]
     Indication: HELICOBACTER INFECTION
  7. METFORMIN [Concomitant]
     Indication: DIABETES MELLITUS
  8. SIVASTIN [Concomitant]
     Indication: DYSLIPIDAEMIA

REACTIONS (9)
  - Pallor [Unknown]
  - Anaphylactic shock [Recovered/Resolved]
  - Hyperhidrosis [Unknown]
  - Agitation [Unknown]
  - Cough [Unknown]
  - Respiration abnormal [Unknown]
  - Asthma [Unknown]
  - Gastrooesophageal reflux disease [Unknown]
  - Hiatus hernia [Unknown]
